FAERS Safety Report 7644273-0 (Version None)
Quarter: 2011Q3

REPORT INFORMATION
  Report Type: 
  Country: None (occurrence: None)
  Receive Date: 20110729
  Receipt Date: 20110722
  Transmission Date: 20111222
  Serious: Yes (Hospitalization, Other)
  Sender: FDA-Public Use
  Company Number: PHEH2010US03389

PATIENT
  Sex: Female

DRUGS (25)
  1. ZELNORM [Suspect]
     Indication: IRRITABLE BOWEL SYNDROME
     Dosage: UNK UKN, UNK
     Route: 048
  2. ZYRTEC [Concomitant]
  3. ATARAX [Concomitant]
     Route: 048
  4. EUCERIN CREME [Concomitant]
  5. NAPROXEN [Concomitant]
  6. PROTONIX [Concomitant]
     Dosage: 40 MG, QD
  7. CELEBREX [Concomitant]
  8. PLAQUENIL [Concomitant]
  9. FLEXERIL [Concomitant]
     Dosage: 10 MG, TID PRN
     Route: 048
  10. BENADRYL ^ACHE^ [Concomitant]
  11. PENICILLIN NOS [Concomitant]
  12. CIPROFLOXACIN [Concomitant]
  13. LORTAB [Concomitant]
  14. TYLENOL-500 [Concomitant]
  15. PREVACID [Concomitant]
  16. PREDNISONE [Concomitant]
  17. LISINOPRIL [Concomitant]
  18. COREG [Concomitant]
  19. CLARITIN [Concomitant]
  20. LEVAQUIN [Concomitant]
  21. DULOXETINE HYDROCHLORIDE [Concomitant]
  22. NOVOLIN 70/30 [Concomitant]
  23. SARNA [Concomitant]
  24. BACTRIM [Concomitant]
  25. SINGULAIR [Concomitant]

REACTIONS (14)
  - PALPITATIONS [None]
  - CARDIAC DISORDER [None]
  - CEREBROVASCULAR ACCIDENT [None]
  - CARDIOMYOPATHY [None]
  - ARTHRALGIA [None]
  - SYSTEMIC LUPUS ERYTHEMATOSUS [None]
  - MALAISE [None]
  - DYSPNOEA [None]
  - INJURY [None]
  - WEIGHT INCREASED [None]
  - RASH [None]
  - CHEST PAIN [None]
  - EJECTION FRACTION [None]
  - ABDOMINAL PAIN [None]
